FAERS Safety Report 16139524 (Version 1)
Quarter: 2019Q2

REPORT INFORMATION
  Report Type: Report from Study
  Country: US (occurrence: US)
  Receive Date: 20190401
  Receipt Date: 20190401
  Transmission Date: 20190711
  Serious: Yes (Hospitalization)
  Sender: FDA-Public Use
  Company Number: US-ASTELLAS-2019US013023

PATIENT
  Age: 76 Year
  Sex: Female
  Weight: 61 kg

DRUGS (2)
  1. ERLOTINIB [Suspect]
     Active Substance: ERLOTINIB
     Indication: BRONCHIAL CARCINOMA
     Route: 065
     Dates: start: 20190201, end: 201902
  2. ERLOTINIB [Suspect]
     Active Substance: ERLOTINIB
     Indication: LUNG NEOPLASM MALIGNANT
     Route: 065
     Dates: start: 20190101, end: 201901

REACTIONS (10)
  - Diarrhoea [Unknown]
  - Skin ulcer [Recovered/Resolved]
  - Malaise [Recovered/Resolved]
  - Pneumonia [Unknown]
  - Feeding disorder [Recovered/Resolved]
  - Rash [Recovered/Resolved]
  - Faeces discoloured [Unknown]
  - Dehydration [Recovered/Resolved]
  - Gastrointestinal haemorrhage [Unknown]
  - Weight decreased [Recovered/Resolved]

NARRATIVE: CASE EVENT DATE: 201901
